FAERS Safety Report 5250151-7 (Version None)
Quarter: 2007Q1

REPORT INFORMATION
  Report Type: 
  Country: None (occurrence: None)
  Receive Date: 20070228
  Receipt Date: 20060214
  Transmission Date: 20070707
  Serious: No
  Sender: FDA-Public Use
  Company Number: US-GLAXOSMITHKLINE-A0593679A

PATIENT
  Age: 72 Year
  Sex: Female

DRUGS (2)
  1. LAMICTAL [Suspect]
     Indication: EPILEPSY
     Dosage: 100MG TWICE PER DAY
     Route: 048
     Dates: start: 20051001
  2. PRIMASOL [Concomitant]

REACTIONS (3)
  - MOUTH ULCERATION [None]
  - STOMATITIS [None]
  - WRONG TECHNIQUE IN DRUG USAGE PROCESS [None]
